FAERS Safety Report 6906101-8 (Version None)
Quarter: 2010Q3

REPORT INFORMATION
  Report Type: 
  Country: None (occurrence: None)
  Receive Date: 20100802
  Receipt Date: 20100720
  Transmission Date: 20110219
  Serious: Yes (Hospitalization)
  Sender: FDA-Public Use
  Company Number: 7011781

PATIENT
  Age: 61 Year
  Sex: Male

DRUGS (6)
  1. REBIF [Suspect]
     Indication: RELAPSING-REMITTING MULTIPLE SCLEROSIS
     Dosage: 22 MCG, 3 IN 1 WK, SUBCUTANEOUS
     Route: 058
     Dates: start: 20091215
  2. GLUCOFORMIN (METFORMIN) (METFORMIN HYDROCHLORIDE) [Concomitant]
  3. SINVASTATINE (SMIVASTATIN) [Concomitant]
  4. RAMIPRIL [Concomitant]
  5. LIBERAN (BETANECOL) (CHLORDIAZEPOXIDE) [Concomitant]
  6. VENLAFAXINE HCL [Concomitant]

REACTIONS (3)
  - DEEP VEIN THROMBOSIS [None]
  - PARAESTHESIA [None]
  - URINARY TRACT INFECTION [None]
